FAERS Safety Report 6473255-X (Version None)
Quarter: 2009Q4

REPORT INFORMATION
  Report Type: 
  Country: None (occurrence: None)
  Receive Date: 20091204
  Receipt Date: 20080611
  Transmission Date: 20100525
  Serious: Yes (Other)
  Sender: FDA-Public Use
  Company Number: DE-ELI_LILLY_AND_COMPANY-DE200808000801

PATIENT
  Sex: Male

DRUGS (3)
  1. GEMZAR [Suspect]
     Indication: ADRENOCORTICAL CARCINOMA
     Dosage: 800 MG/M2, 800 MG/M2, EVERY 14 DAYS, OVER 30 MIN
     Route: 042
  2. ERLOTINIB [Concomitant]
     Indication: ADRENOCORTICAL CARCINOMA
     Dosage: 100 MG, DAILY (1/D)
     Route: 048
  3. MITOTANE [Concomitant]
     Dosage: UNK, UNKNOWN
     Route: 065

REACTIONS (2)
  - CONVULSION [None]
  - DRUG INEFFECTIVE [None]
